FAERS Safety Report 9864012 (Version 1)
Quarter: 2014Q1

REPORT INFORMATION
  Report Type: Spontaneous
  Country: IT (occurrence: IT)
  Receive Date: 20140203
  Receipt Date: 20140203
  Transmission Date: 20141002
  Serious: Yes (Other)
  Sender: FDA-Public Use
  Company Number: PHHY2014IT011822

PATIENT
  Sex: Female
  Weight: 2.3 kg

DRUGS (7)
  1. CICLOSPORIN [Suspect]
     Dosage: UNK
     Route: 064
  2. AZATHIOPRINE [Suspect]
     Dosage: MATERNAL DOSE 50 MG, PER DAY
     Route: 064
  3. FUROSEMIDE [Suspect]
     Dosage: MATERNAL DOSE 50 MG, PER DAY
     Route: 064
  4. AMLODIPINE [Suspect]
     Dosage: MATERNAL DOSE 2.5 MG, PER DAY
     Route: 064
  5. IRON [Suspect]
     Route: 064
  6. SULPHINPYRAZONE [Suspect]
     Route: 064
  7. FOLIC ACID [Suspect]
     Route: 064

REACTIONS (2)
  - Low birth weight baby [Unknown]
  - Foetal exposure during pregnancy [Unknown]
